FAERS Safety Report 4732612-X (Version None)
Quarter: 2005Q3

REPORT INFORMATION
  Report Type: 
  Country: None (occurrence: None)
  Receive Date: 20050801
  Receipt Date: 20050722
  Transmission Date: 20060218
  Serious: Yes (Hospitalization)
  Sender: FDA-Public Use
  Company Number: MEDI-0003545

PATIENT
  Age: 61 Year
  Sex: Female

DRUGS (9)
  1. ETHYOL [Suspect]
     Indication: RADIOTHERAPY
     Dosage: 500 MG, SUBCUTANEOUS
     Route: 058
     Dates: start: 20050526, end: 20050628
  2. RADIATION THERAPY [Concomitant]
  3. ACIPHEX [Concomitant]
  4. ADVIL (IBUPROREN) [Concomitant]
  5. TAXOL [Concomitant]
  6. CARBOPLATIN [Concomitant]
  7. BENADRYL [Concomitant]
  8. ZOFRAN (ONDANSETRON HYDROCHLORIDE0 [Concomitant]
  9. DECADRON [Concomitant]

REACTIONS (8)
  - BILE DUCT OBSTRUCTION [None]
  - HAEMOGLOBIN DECREASED [None]
  - HYPOKALAEMIA [None]
  - HYPOMAGNESAEMIA [None]
  - PERIPHERAL VASCULAR DISORDER [None]
  - PLATELET COUNT INCREASED [None]
  - RADIATION OESOPHAGITIS [None]
  - WHITE BLOOD CELL COUNT DECREASED [None]
